FAERS Safety Report 8846566 (Version 1)
Quarter: 2012Q4

REPORT INFORMATION
  Report Type: 
  Country: BE (occurrence: BE)
  Receive Date: 20121017
  Receipt Date: 20121017
  Transmission Date: 20130627
  Serious: Yes (Hospitalization)
  Sender: FDA-Public Use
  Company Number: BE-GLAXOSMITHKLINE-B0838355A

PATIENT
  Age: 70 Year
  Sex: Male

DRUGS (7)
  1. ZOVIRAX [Suspect]
     Indication: ENCEPHALITIS HERPES
     Dosage: 750MG Three times per day
     Route: 042
     Dates: start: 20120908, end: 20120910
  2. DEPAKINE [Concomitant]
  3. CLEXANE [Concomitant]
  4. DUOVENT [Concomitant]
  5. PANTOMED (PANTROPRAZOLE) [Concomitant]
  6. PARACETAMOL [Concomitant]
  7. DOLZAM [Concomitant]

REACTIONS (3)
  - Hypersensitivity [Recovered/Resolved]
  - Rash generalised [Recovered/Resolved]
  - Headache [Recovered/Resolved]
